FAERS Safety Report 8058660-2 (Version None)
Quarter: 2012Q1

REPORT INFORMATION
  Report Type: 
  Country: None (occurrence: None)
  Receive Date: 20120120
  Receipt Date: 20120110
  Transmission Date: 20120608
  Serious: Yes (Hospitalization, Other)
  Sender: FDA-Public Use
  Company Number: US-BAYER-2010-001149

PATIENT
  Sex: Female
  Weight: 75.283 kg

DRUGS (6)
  1. PROMETHAZINE [Concomitant]
     Dosage: 8.25 MG/5 ML
     Route: 048
  2. YASMIN [Suspect]
     Dosage: UNK
     Route: 048
     Dates: start: 20040101, end: 20090101
  3. ALBUTEROL [Concomitant]
     Dosage: 90 MCG
     Route: 055
  4. VIGAMOX [Concomitant]
     Dosage: 0.5 %, UNK
     Route: 047
  5. VICODIN [Concomitant]
  6. FLUTICASONE PROPIONATE [Concomitant]
     Dosage: 50 MCG
     Route: 045

REACTIONS (3)
  - EMOTIONAL DISTRESS [None]
  - CHOLELITHIASIS [None]
  - CHOLECYSTITIS CHRONIC [None]
